FAERS Safety Report 23384392 (Version 1)
Quarter: 2024Q1

REPORT INFORMATION
  Report Type: Spontaneous
  Country: US (occurrence: US)
  Receive Date: 20240109
  Receipt Date: 20240109
  Transmission Date: 20240410
  Serious: No
  Sender: FDA-Public Use
  Company Number: US-PFIZER INC-PV202400000622

PATIENT
  Age: 58 Year

DRUGS (1)
  1. XELJANZ [Suspect]
     Active Substance: TOFACITINIB CITRATE
     Indication: Rheumatoid arthritis
     Dosage: UNK

REACTIONS (6)
  - Immune system disorder [Unknown]
  - COVID-19 [Unknown]
  - Osteopenia [Unknown]
  - Gait disturbance [Unknown]
  - Dyspepsia [Unknown]
  - Weight decreased [Unknown]
